FAERS Safety Report 14916979 (Version 2)
Quarter: 2018Q2

REPORT INFORMATION
  Report Type: Report from Study
  Country: US (occurrence: US)
  Receive Date: 20180520
  Receipt Date: 20180625
  Transmission Date: 20180711
  Serious: Yes (Death)
  Sender: FDA-Public Use
  Company Number: PHEH2018US019147

PATIENT
  Age: 52 Year
  Sex: Female
  Weight: 76.1 kg

DRUGS (1)
  1. RYDAPT [Suspect]
     Active Substance: MIDOSTAURIN
     Indication: ACUTE MYELOID LEUKAEMIA
     Dosage: 50 MG, BID
     Route: 048
     Dates: start: 20180423, end: 20180430

REACTIONS (2)
  - Large intestine perforation [Fatal]
  - Neutropenia [Fatal]

NARRATIVE: CASE EVENT DATE: 20180514
